FAERS Safety Report 7242939-8 (Version None)
Quarter: 2011Q1

REPORT INFORMATION
  Report Type: 
  Country: None (occurrence: None)
  Receive Date: 20110125
  Receipt Date: 20110114
  Transmission Date: 20110831
  Serious: Yes (Other)
  Sender: FDA-Public Use
  Company Number: US-CELGENEUS-163-20785-11011500

PATIENT

DRUGS (3)
  1. DEXAMETHASONE [Suspect]
     Indication: MULTIPLE MYELOMA
     Route: 065
  2. ZOLEDRONIC ACID [Concomitant]
     Route: 051
  3. THALOMID [Suspect]
     Indication: MULTIPLE MYELOMA
     Dosage: 50-200 MG
     Route: 048

REACTIONS (14)
  - ENTERITIS [None]
  - HYPOTENSION [None]
  - MUCOSAL INFLAMMATION [None]
  - DECREASED APPETITE [None]
  - METABOLIC DISORDER [None]
  - ELECTROLYTE IMBALANCE [None]
  - FEBRILE NEUTROPENIA [None]
  - ENGRAFTMENT SYNDROME [None]
  - NAUSEA [None]
  - ENTEROCOLITIS INFECTIOUS [None]
  - PNEUMONITIS [None]
  - FATIGUE [None]
  - VOMITING [None]
  - CARDIAC FAILURE CONGESTIVE [None]
